FAERS Safety Report 4278714-6 (Version None)
Quarter: 2004Q1

REPORT INFORMATION
  Report Type: 
  Country: None (occurrence: None)
  Receive Date: 20040122
  Receipt Date: 20040108
  Transmission Date: 20041129
  Serious: Yes (Other)
  Sender: FDA-Public Use
  Company Number: SUSI-2004-00014

PATIENT
  Age: 17 Year
  Sex: Male

DRUGS (1)
  1. ADDERALL XR 20 [Suspect]
     Indication: ATTENTION DEFICIT/HYPERACTIVITY DISORDER
     Dosage: 20 MG, 1 X /DAY, QD, ORAL
     Route: 048
     Dates: start: 20030101

REACTIONS (4)
  - ABDOMINAL PAIN [None]
  - BONE MARROW DEPRESSION [None]
  - PLATELET COUNT DECREASED [None]
  - SPLENOMEGALY [None]
